FAERS Safety Report 24166815 (Version 1)
Quarter: 2024Q3

REPORT INFORMATION
  Report Type: Spontaneous
  Country: US (occurrence: None)
  Receive Date: 20240801
  Receipt Date: 20240801
  Transmission Date: 20241017
  Serious: No
  Sender: Public
  Company Number: None

PATIENT

DRUGS (2)
  1. TALQUETAMAB [Suspect]
     Active Substance: TALQUETAMAB
  2. TECVAYLI [Suspect]
     Active Substance: TECLISTAMAB-CQYV

REACTIONS (3)
  - Product barcode issue [None]
  - Product preparation error [None]
  - Intercepted product dispensing error [None]
